FAERS Safety Report 10393576 (Version 1)
Quarter: 2014Q3

REPORT INFORMATION
  Report Type: Other
  Country: JP (occurrence: JP)
  Receive Date: 20140819
  Receipt Date: 20140819
  Transmission Date: 20150326
  Serious: Yes (Hospitalization)
  Sender: FDA-Public Use
  Company Number: JP-BRISTOL-MYERS SQUIBB COMPANY-21317052

PATIENT
  Age: 56 Year
  Sex: Male

DRUGS (2)
  1. CAPECITABINE [Concomitant]
     Active Substance: CAPECITABINE
     Indication: APPENDIX CANCER
  2. ERBITUX [Suspect]
     Active Substance: CETUXIMAB
     Indication: APPENDIX CANCER
     Route: 041

REACTIONS (2)
  - Duodenal obstruction [Recovering/Resolving]
  - Ileus [Recovering/Resolving]

NARRATIVE: CASE EVENT DATE: 20100717
